FAERS Safety Report 23816818 (Version 2)
Quarter: 2025Q3

REPORT INFORMATION
  Report Type: Report from Study
  Country: CO (occurrence: CO)
  Receive Date: 20240504
  Receipt Date: 20250808
  Transmission Date: 20251021
  Serious: Yes (Other)
  Sender: NOVARTIS
  Company Number: CO-002147023-NVSC2024CO090734

PATIENT
  Sex: Female
  Weight: 77 kg

DRUGS (1)
  1. COSENTYX [Suspect]
     Active Substance: SECUKINUMAB
     Indication: Psoriatic arthropathy
     Dosage: 150 MG, QMO
     Route: 058
     Dates: start: 2022, end: 202501

REACTIONS (4)
  - Fall [Recovering/Resolving]
  - Dizziness [Recovering/Resolving]
  - Joint injury [Unknown]
  - Malaise [Unknown]
